FAERS Safety Report 5940676-0 (Version None)
Quarter: 2008Q4

REPORT INFORMATION
  Report Type: 
  Country: None (occurrence: None)
  Receive Date: 20081103
  Receipt Date: 20081103
  Transmission Date: 20090506
  Serious: Yes (Hospitalization)
  Sender: FDA-Public Use
  Company Number: None

PATIENT
  Sex: Male
  Weight: 76.1 kg

DRUGS (1)
  1. TEMOZOLOMIDE [Suspect]
     Dosage: 4095 MG

REACTIONS (18)
  - ASPIRATION [None]
  - BRONCHIOLITIS [None]
  - DECREASED APPETITE [None]
  - DELIRIUM [None]
  - DYSPHASIA [None]
  - ENCEPHALITIS [None]
  - GASTROOESOPHAGEAL REFLUX DISEASE [None]
  - HERPES ZOSTER [None]
  - HYPOPHAGIA [None]
  - MUCOSAL INFLAMMATION [None]
  - NAUSEA [None]
  - PHARYNGITIS [None]
  - PNEUMONIA [None]
  - PNEUMONIA BACTERIAL [None]
  - RASH GENERALISED [None]
  - RESPIRATORY DISTRESS [None]
  - RESPIRATORY FAILURE [None]
  - VOMITING [None]
